FAERS Safety Report 20723571 (Version 1)
Quarter: 2022Q2

REPORT INFORMATION
  Report Type: Spontaneous
  Country: CN (occurrence: CN)
  Receive Date: 20220419
  Receipt Date: 20220419
  Transmission Date: 20220721
  Serious: Yes (Other)
  Sender: FDA-Public Use
  Company Number: CN-BAXTER-2022BAX008309

PATIENT
  Age: 58 Year
  Sex: Male
  Weight: 65 kg

DRUGS (3)
  1. IFOSFAMIDE [Suspect]
     Active Substance: IFOSFAMIDE
     Indication: Thrombocytopenia
     Dosage: IFOSFAMIDE FOR INJECTION (3 G) + SODIUM CHLORIDE INJECTION (500 ML), ST
     Route: 041
  2. SODIUM CHLORIDE [Suspect]
     Active Substance: SODIUM CHLORIDE
     Indication: Medication dilution
     Dosage: IFOSFAMIDE FOR INJECTION (3 G) + SODIUM CHLORIDE INJECTION (500 ML), ST
     Route: 041
  3. EPIRUBICIN [Suspect]
     Active Substance: EPIRUBICIN
     Indication: Thrombocytopenia
     Route: 041

REACTIONS (1)
  - Myelosuppression [Recovering/Resolving]

NARRATIVE: CASE EVENT DATE: 20220220
